FAERS Safety Report 9343031 (Version 1)
Quarter: 2013Q2

REPORT INFORMATION
  Report Type: Report from Study
  Country: US (occurrence: US)
  Receive Date: 20130611
  Receipt Date: 20130611
  Transmission Date: 20140414
  Serious: No
  Sender: FDA-Public Use
  Company Number: US-ALEXION-A201301315

PATIENT
  Age: 40 Year
  Sex: Male
  Weight: 107 kg

DRUGS (3)
  1. SOLIRIS [Suspect]
     Indication: HAEMOLYTIC URAEMIC SYNDROME
     Dosage: 900 MG, QW X 4
     Route: 042
     Dates: start: 20130520
  2. SOLIRIS [Suspect]
     Dosage: 1200 MG, Q2W
     Route: 042
     Dates: start: 20130617
  3. CLONIDINE [Concomitant]
     Dosage: 0.1 MG, BID
     Route: 048

REACTIONS (1)
  - Infusion related reaction [Recovered/Resolved]
